FAERS Safety Report 6363575-1 (Version None)
Quarter: 2009Q3

REPORT INFORMATION
  Report Type: 
  Country: None (occurrence: None)
  Receive Date: 20090919
  Receipt Date: 20090702
  Transmission Date: 20100115
  Serious: Yes (Hospitalization)
  Sender: FDA-Public Use
  Company Number: US-ABBOTT-09P-163-0583346-00

PATIENT
  Sex: Female
  Weight: 55.842 kg

DRUGS (11)
  1. HUMIRA [Suspect]
     Indication: RHEUMATOID ARTHRITIS
     Dates: start: 20080101, end: 20090101
  2. CELEBREX [Concomitant]
     Indication: PAIN
  3. AZULFADINE [Concomitant]
     Indication: RHEUMATOID ARTHRITIS
  4. PLAQUENIL [Concomitant]
     Indication: RHEUMATOID ARTHRITIS
  5. PREDNISONE [Concomitant]
     Indication: RHEUMATOID ARTHRITIS
  6. SYNTHROID [Concomitant]
     Indication: HYPOTHYROIDISM
  7. AMLODIPINE [Concomitant]
     Indication: HYPERTENSION
  8. MULTIPLE VITAMINS [Concomitant]
     Indication: ROUTINE HEALTH MAINTENANCE
  9. ACTONEL [Concomitant]
     Indication: OSTEOPOROSIS
  10. VICODIN [Concomitant]
     Indication: PAIN
  11. IRON [Concomitant]
     Indication: ROUTINE HEALTH MAINTENANCE

REACTIONS (1)
  - PAIN [None]
